FAERS Safety Report 4948826-X (Version None)
Quarter: 2006Q1

REPORT INFORMATION
  Report Type: 
  Country: None (occurrence: None)
  Receive Date: 20060315
  Receipt Date: 20060302
  Transmission Date: 20060701
  Serious: Yes (Disabling, Other)
  Sender: FDA-Public Use
  Company Number: USA-2004-0016321

PATIENT
  Age: 35 Year
  Sex: Male
  Weight: 79.4 kg

DRUGS (9)
  1. OXYCONTIN [Suspect]
     Indication: PAIN
     Dosage: 80 MG, DAILY
  2. SOMA [Concomitant]
  3. AMBIEN [Concomitant]
  4. KLONOPIN [Concomitant]
  5. ZANAFLEX [Concomitant]
  6. DURAGESIC-100 [Concomitant]
  7. PERCOCET [Concomitant]
  8. EXTRA STRENGTH TYLENOL [Concomitant]
  9. CELEBREX [Concomitant]

REACTIONS (85)
  - ABNORMAL BEHAVIOUR [None]
  - ACCIDENT AT WORK [None]
  - AMNESIA [None]
  - ANALGESIC EFFECT [None]
  - ANOREXIA [None]
  - ANXIETY [None]
  - APATHY [None]
  - APHAGIA [None]
  - ARTHRALGIA [None]
  - ASTHENIA [None]
  - BACK PAIN [None]
  - BONE PAIN [None]
  - CHANGE OF BOWEL HABIT [None]
  - CHEST PAIN [None]
  - CLUMSINESS [None]
  - COLD SWEAT [None]
  - CONDITION AGGRAVATED [None]
  - CONSTIPATION [None]
  - DELUSIONAL DISORDER, UNSPECIFIED TYPE [None]
  - DEPRESSION [None]
  - DIARRHOEA [None]
  - DIFFICULTY IN WALKING [None]
  - DRUG ABUSER [None]
  - DRUG DEPENDENCE [None]
  - DRUG EFFECT DECREASED [None]
  - DRUG INEFFECTIVE [None]
  - DRUG TOLERANCE [None]
  - DRUG TOLERANCE INCREASED [None]
  - DRUG TOXICITY [None]
  - DRUG WITHDRAWAL SYNDROME [None]
  - DYSPEPSIA [None]
  - DYSPHORIA [None]
  - EMOTIONAL DISTRESS [None]
  - EUPHORIC MOOD [None]
  - FALL [None]
  - FATIGUE [None]
  - HEADACHE [None]
  - HOMICIDAL IDEATION [None]
  - HYPOAESTHESIA [None]
  - INADEQUATE ANALGESIA [None]
  - INCOHERENT [None]
  - INJURY [None]
  - INSOMNIA [None]
  - INTERVERTEBRAL DISC DEGENERATION [None]
  - INTERVERTEBRAL DISC DISORDER [None]
  - INTERVERTEBRAL DISC PROTRUSION [None]
  - MALAISE [None]
  - MEMORY IMPAIRMENT [None]
  - MENTAL DISORDER [None]
  - MICTURITION URGENCY [None]
  - MOOD SWINGS [None]
  - MUSCLE SPASMS [None]
  - MUSCULOSKELETAL CHEST PAIN [None]
  - MUSCULOSKELETAL STIFFNESS [None]
  - MYALGIA [None]
  - NAUSEA [None]
  - NEURALGIA [None]
  - NIGHT SWEATS [None]
  - NIGHTMARE [None]
  - OBSESSIVE-COMPULSIVE DISORDER [None]
  - OCULAR HYPERAEMIA [None]
  - PAIN [None]
  - PAIN IN EXTREMITY [None]
  - PAINFUL RESPIRATION [None]
  - PARAESTHESIA [None]
  - PARANOIA [None]
  - PERIPHERAL COLDNESS [None]
  - POST PROCEDURAL COMPLICATION [None]
  - PRURITUS [None]
  - PSYCHOMOTOR HYPERACTIVITY [None]
  - PSYCHOMOTOR RETARDATION [None]
  - RADICULITIS [None]
  - RADICULOPATHY [None]
  - SKIN LESION [None]
  - SOCIAL AVOIDANT BEHAVIOUR [None]
  - STOMACH DISCOMFORT [None]
  - STRESS [None]
  - SUICIDAL IDEATION [None]
  - SUICIDE ATTEMPT [None]
  - TENSION HEADACHE [None]
  - THIRST [None]
  - TREATMENT NONCOMPLIANCE [None]
  - URINARY INCONTINENCE [None]
  - VOMITING [None]
  - WEIGHT [None]
